FAERS Safety Report 21169343 (Version 1)
Quarter: 2022Q3

REPORT INFORMATION
  Report Type: Spontaneous
  Country: NL (occurrence: NL)
  Receive Date: 20220804
  Receipt Date: 20220804
  Transmission Date: 20221027
  Serious: Yes (Other)
  Sender: FDA-Public Use
  Company Number: NL-ABBVIE-20K-114-3250002-00

PATIENT
  Age: 71 Year
  Sex: Female

DRUGS (11)
  1. TRAMADOL [Suspect]
     Active Substance: TRAMADOL
     Indication: Pain in extremity
     Dosage: UNK
     Route: 065
  2. TRAMADOL [Suspect]
     Active Substance: TRAMADOL
     Indication: Arthralgia
  3. CARBIDOPA\LEVODOPA [Suspect]
     Active Substance: CARBIDOPA\LEVODOPA
     Indication: Parkinson^s disease
     Dosage: CND: 3.9ML/H, END: 2.0ML; REMAINS AT 24 HOURS
     Route: 065
  4. CARBIDOPA\LEVODOPA [Suspect]
     Active Substance: CARBIDOPA\LEVODOPA
     Dosage: MD: 7.0ML, CD: 6.7ML/H, ED: 2.0M, CND: 3.9ML/H, END: 1.0ML
     Route: 065
  5. CARBIDOPA\LEVODOPA [Suspect]
     Active Substance: CARBIDOPA\LEVODOPA
     Dosage: MD: 7.0 ML; CD: 6.7 ML/H; ED: 2.0 ML
     Route: 065
  6. CARBIDOPA\LEVODOPA [Suspect]
     Active Substance: CARBIDOPA\LEVODOPA
     Dosage: END: 1.0 ML, CND: 3.3 ML/H GOES TO 24 HOURS
     Route: 065
  7. CARBIDOPA\LEVODOPA [Suspect]
     Active Substance: CARBIDOPA\LEVODOPA
     Dosage: END: 2.0 ML, CND: 3.6 ML/H
     Route: 065
  8. CARBIDOPA\LEVODOPA [Suspect]
     Active Substance: CARBIDOPA\LEVODOPA
     Dosage: MD: 7.0 ML; CD: 6.4 ML/H; ED: 2.0 ML
     Route: 065
     Dates: start: 20180831
  9. BENSERAZIDE HYDROCHLORIDE\LEVODOPA [Concomitant]
     Active Substance: BENSERAZIDE HYDROCHLORIDE\LEVODOPA
     Indication: Parkinson^s disease
     Dosage: 125 MILLIGRAM, ONCE A DAY
     Route: 048
  10. BENSERAZIDE HYDROCHLORIDE\LEVODOPA [Concomitant]
     Active Substance: BENSERAZIDE HYDROCHLORIDE\LEVODOPA
     Indication: Parkinson^s disease
     Dosage: 125 MILLIGRAM (3 CAPSULES AT NIGHT)
     Route: 048
  11. POLYETHYLENE GLYCOLS [Concomitant]
     Active Substance: POLYETHYLENE GLYCOLS
     Indication: Abnormal faeces
     Dosage: UNK
     Route: 065

REACTIONS (26)
  - Dystonia [Not Recovered/Not Resolved]
  - Tremor [Not Recovered/Not Resolved]
  - Poor quality sleep [Recovering/Resolving]
  - Myalgia [Not Recovered/Not Resolved]
  - Drug interaction [Not Recovered/Not Resolved]
  - Weight decreased [Recovered/Resolved]
  - Mobility decreased [Not Recovered/Not Resolved]
  - Weight gain poor [Not Recovered/Not Resolved]
  - Nasopharyngitis [Not Recovered/Not Resolved]
  - Unevaluable event [Recovering/Resolving]
  - Device difficult to use [Not Recovered/Not Resolved]
  - Sneezing [Not Recovered/Not Resolved]
  - Somnolence [Not Recovered/Not Resolved]
  - Bradykinesia [Not Recovered/Not Resolved]
  - Walking aid user [Not Recovered/Not Resolved]
  - Diarrhoea [Recovered/Resolved]
  - Muscle rigidity [Not Recovered/Not Resolved]
  - Incontinence [Not Recovered/Not Resolved]
  - Therapeutic product effect incomplete [Recovered/Resolved]
  - Anal incontinence [Not Recovered/Not Resolved]
  - Pain in extremity [Not Recovered/Not Resolved]
  - Hypoaesthesia [Not Recovered/Not Resolved]
  - Sleep disorder [Not Recovered/Not Resolved]
  - On and off phenomenon [Not Recovered/Not Resolved]
  - Nocturia [Not Recovered/Not Resolved]
  - Suspiciousness [Not Recovered/Not Resolved]

NARRATIVE: CASE EVENT DATE: 20210101
